FAERS Safety Report 10982987 (Version 4)
Quarter: 2016Q4

REPORT INFORMATION
  Report Type: Spontaneous
  Country: DK (occurrence: DK)
  Receive Date: 20150403
  Receipt Date: 20161226
  Transmission Date: 20170206
  Serious: Yes (Other)
  Sender: FDA-Public Use
  Company Number: DK-BRISTOL-MYERS SQUIBB COMPANY-16577603

PATIENT
  Age: 5 Year
  Sex: Male
  Weight: 15 kg

DRUGS (6)
  1. VENTOLINE [Concomitant]
     Active Substance: ALBUTEROL
     Indication: ASTHMA
     Dosage: DOSIS: 0,2 MG 2 GANGE DAGLIG EFTER BEHOV (F??? GANGE I PERIODEN).
     Route: 055
  2. SINGULAIR [Concomitant]
     Active Substance: MONTELUKAST SODIUM
     Indication: ASTHMA
     Dosage: 4 MG, QD
     Route: 048
  3. ABILIFY [Suspect]
     Active Substance: ARIPIPRAZOLE
     Indication: ATTENTION DEFICIT/HYPERACTIVITY DISORDER
     Dosage: 0.5 MG, QD
     Route: 048
     Dates: start: 201201, end: 20120211
  4. ABILIFY [Suspect]
     Active Substance: ARIPIPRAZOLE
     Indication: DEVELOPMENTAL DELAY
     Dosage: 1 MG, QD
     Route: 048
     Dates: start: 20120212, end: 20120308
  5. ABILIFY [Suspect]
     Active Substance: ARIPIPRAZOLE
     Indication: BRAIN INJURY
     Route: 065
  6. FLIXOTIDE [Concomitant]
     Active Substance: FLUTICASONE PROPIONATE
     Indication: ASTHMA
     Dosage: 100 ?G, BID
     Route: 055

REACTIONS (11)
  - Dizziness postural [Unknown]
  - Aggression [Unknown]
  - Mood swings [Unknown]
  - Product use issue [Unknown]
  - Fatigue [Recovering/Resolving]
  - Restlessness [Unknown]
  - Somnolence [Unknown]
  - Affect lability [Unknown]
  - Hyperphagia [Unknown]
  - Muscle rigidity [Unknown]
  - Tic [Unknown]

NARRATIVE: CASE EVENT DATE: 20120128
